FAERS Safety Report 12247830 (Version 3)
Quarter: 2016Q2

REPORT INFORMATION
  Report Type: Report from Study
  Country: US (occurrence: US)
  Receive Date: 20160408
  Receipt Date: 20160422
  Transmission Date: 20160815
  Serious: Yes (Hospitalization, Other)
  Sender: FDA-Public Use
  Company Number: US-GILEAD-2016-0207139

PATIENT
  Age: 72 Year
  Sex: Female

DRUGS (17)
  1. SPIRONOLACTONE. [Concomitant]
     Active Substance: SPIRONOLACTONE
  2. ASPIRIN                            /00002701/ [Concomitant]
     Active Substance: ASPIRIN
  3. NIFEDIPINE. [Concomitant]
     Active Substance: NIFEDIPINE
  4. GLIPIZIDE. [Concomitant]
     Active Substance: GLIPIZIDE
  5. AMBRISENTAN [Suspect]
     Active Substance: AMBRISENTAN
     Indication: PULMONARY ARTERIAL HYPERTENSION
     Dosage: 10 MG, QD
     Route: 065
     Dates: start: 20130417
  6. ORENITRAM [Concomitant]
     Active Substance: TREPROSTINIL
  7. LASIX [Concomitant]
     Active Substance: FUROSEMIDE
  8. PROTONIX                           /00661201/ [Concomitant]
     Active Substance: OMEPRAZOLE
  9. TRICOR                             /00090101/ [Concomitant]
     Active Substance: ADENOSINE
  10. UPTRAVI [Concomitant]
     Active Substance: SELEXIPAG
  11. SINGULAIR [Concomitant]
     Active Substance: MONTELUKAST SODIUM
  12. LIDODERM [Concomitant]
     Active Substance: LIDOCAINE
  13. ALBUTEROL SULFATE. [Concomitant]
     Active Substance: ALBUTEROL SULFATE
  14. RECLAST [Concomitant]
     Active Substance: ZOLEDRONIC ACID
  15. METFORMIN [Concomitant]
     Active Substance: METFORMIN HYDROCHLORIDE
  16. FLONASE                            /00908302/ [Concomitant]
     Active Substance: MOMETASONE FUROATE
  17. VITAMIN D3 [Concomitant]
     Active Substance: CHOLECALCIFEROL

REACTIONS (3)
  - Cough [Not Recovered/Not Resolved]
  - Pulmonary embolism [Recovered/Resolved]
  - Chronic obstructive pulmonary disease [Recovered/Resolved]

NARRATIVE: CASE EVENT DATE: 20160331
